FAERS Safety Report 8913633 (Version 1)
Quarter: 2012Q4

REPORT INFORMATION
  Report Type: Spontaneous
  Country: DK (occurrence: None)
  Receive Date: 20121113
  Receipt Date: 20121113
  Transmission Date: 20130627
  Serious: Yes (Hospitalization)
  Sender: FDA-Public Use
  Company Number: 2012MA013137

PATIENT
  Age: 62 Year
  Sex: Male

DRUGS (3)
  1. DOXAZOSIN [Suspect]
     Indication: HYPERTENSION
     Dates: start: 201210, end: 20121022
  2. AMLODIPINE [Concomitant]
  3. RAMIPRIL [Concomitant]

REACTIONS (6)
  - Tachycardia [None]
  - Syncope [None]
  - Fall [None]
  - Atrial fibrillation [None]
  - Feeling abnormal [None]
  - Nasopharyngitis [None]
